FAERS Safety Report 5900529-0 (Version None)
Quarter: 2008Q3

REPORT INFORMATION
  Report Type: 
  Country: None (occurrence: None)
  Receive Date: 20080926
  Receipt Date: 20080916
  Transmission Date: 20090109
  Serious: No
  Sender: FDA-Public Use
  Company Number: US-B.I. PHARMACEUTICALS,INC./RIDGEFIELD-2008-BP-13777BP

PATIENT
  Age: 67 Year
  Sex: Male
  Weight: 115 kg

DRUGS (3)
  1. MIRAPEX [Suspect]
     Indication: PARKINSON'S DISEASE
     Dosage: 6MG
     Dates: start: 20051201, end: 20061001
  2. SELEGILINE HCL [Concomitant]
     Dosage: 10MG
     Route: 048
     Dates: start: 20051201
  3. ZOLOFT [Concomitant]
     Dosage: 50MG
     Route: 048

REACTIONS (1)
  - OEDEMA PERIPHERAL [None]
